FAERS Safety Report 16607861 (Version 1)
Quarter: 2019Q3

REPORT INFORMATION
  Report Type: Spontaneous
  Country: AU (occurrence: AU)
  Receive Date: 20190722
  Receipt Date: 20190722
  Transmission Date: 20191004
  Serious: Yes (Other)
  Sender: FDA-Public Use
  Company Number: AU-BAYER-2019-133691

PATIENT
  Sex: Female

DRUGS (1)
  1. MIRENA [Suspect]
     Active Substance: LEVONORGESTREL
     Dosage: 20 MCG/24HR, CONT
     Route: 015
     Dates: start: 201606, end: 201906

REACTIONS (7)
  - Suicide attempt [Recovering/Resolving]
  - Headache [Recovering/Resolving]
  - Weight increased [Recovering/Resolving]
  - Depression suicidal [Recovering/Resolving]
  - Mood altered [Recovering/Resolving]
  - Pain [Recovering/Resolving]
  - Abdominal distension [Recovering/Resolving]
